FAERS Safety Report 19569945 (Version 4)
Quarter: 2021Q3

REPORT INFORMATION
  Report Type: Spontaneous
  Country: US (occurrence: US)
  Receive Date: 20210716
  Receipt Date: 20210728
  Transmission Date: 20211014
  Serious: Yes (Other)
  Sender: FDA-Public Use
  Company Number: US-AMGEN-USASP2021108073

PATIENT
  Age: 76 Year
  Sex: Female

DRUGS (7)
  1. OXYCODONE [Concomitant]
     Active Substance: OXYCODONE
  2. DYMISTA [Concomitant]
     Active Substance: AZELASTINE HYDROCHLORIDE\FLUTICASONE PROPIONATE
     Indication: SINUSITIS
     Dosage: UNK
     Dates: end: 202103
  3. ZYRTEC [Concomitant]
     Active Substance: CETIRIZINE HYDROCHLORIDE
  4. MODERNA COVID?19 VACCINE [Concomitant]
     Active Substance: CX-024414
  5. OTEZLA [Suspect]
     Active Substance: APREMILAST
     Indication: PSORIATIC ARTHROPATHY
     Dosage: 30 MILLIGRAM, BID
     Route: 048
     Dates: start: 20201112
  6. CLARITIN [Concomitant]
     Active Substance: LORATADINE
  7. DYMISTA [Concomitant]
     Active Substance: AZELASTINE HYDROCHLORIDE\FLUTICASONE PROPIONATE
     Indication: HYPERSENSITIVITY

REACTIONS (4)
  - Fall [Unknown]
  - Dizziness [Unknown]
  - Ankle fracture [Unknown]
  - Joint injury [Unknown]

NARRATIVE: CASE EVENT DATE: 2021
